FAERS Safety Report 6057314-1 (Version None)
Quarter: 2009Q1

REPORT INFORMATION
  Report Type: 
  Country: None (occurrence: None)
  Receive Date: 20090129
  Receipt Date: 20080916
  Transmission Date: 20090719
  Serious: No
  Sender: FDA-Public Use
  Company Number: A0747738A

PATIENT
  Age: 55 Year
  Sex: Male

DRUGS (5)
  1. WELLBUTRIN [Suspect]
     Indication: DEPRESSION
     Route: 048
     Dates: start: 20070725
  2. DIOVAN HCT [Concomitant]
  3. PRILOSEC [Concomitant]
  4. CARAFATE [Concomitant]
  5. ASPIRIN [Concomitant]

REACTIONS (1)
  - TINNITUS [None]
